FAERS Safety Report 7036928-6 (Version None)
Quarter: 2010Q4

REPORT INFORMATION
  Report Type: 
  Country: None (occurrence: None)
  Receive Date: 20101011
  Receipt Date: 20100930
  Transmission Date: 20110411
  Serious: Yes (Hospitalization)
  Sender: FDA-Public Use
  Company Number: US-JNJFOC-20100902476

PATIENT
  Sex: Female
  Weight: 63.8 kg

DRUGS (4)
  1. DOXORUBICIN HYDROCHLORIDE [Suspect]
     Indication: OVARIAN CANCER METASTATIC
     Dosage: DAYS 1 OF EACH CYCLE. (1ST INFUSION)
     Route: 042
  2. DOXORUBICIN HYDROCHLORIDE [Suspect]
     Route: 042
  3. IMC-3G3 (RH ANTI-PDGFRA MAB) [Suspect]
     Indication: OVARIAN CANCER METASTATIC
     Dosage: DAYS 1 AND 14 OF 26 DAY CYCLE. FIRST INFUSION
     Route: 042
  4. IMC-3G3 (RH ANTI-PDGFRA MAB) [Suspect]
     Dosage: SECOND INFUSION
     Route: 042

REACTIONS (1)
  - PROCTITIS [None]
